FAERS Safety Report 20742942 (Version 1)
Quarter: 2022Q2

REPORT INFORMATION
  Report Type: Other
  Country: AU (occurrence: AU)
  Receive Date: 20220425
  Receipt Date: 20220425
  Transmission Date: 20220721
  Serious: Yes (Hospitalization)
  Sender: FDA-Public Use
  Company Number: AU-TOLMAR, INC.-21AU031800

PATIENT
  Sex: Male

DRUGS (1)
  1. ELIGARD [Suspect]
     Active Substance: LEUPROLIDE ACETATE
     Indication: Prostate cancer
     Dosage: 22.5 MILLIGRAM, Q 3 MONTH

REACTIONS (6)
  - Meningitis [Unknown]
  - Confusional state [Unknown]
  - Hallucination [Unknown]
  - Urinary tract infection [Not Recovered/Not Resolved]
  - Hot flush [Not Recovered/Not Resolved]
  - Hyperhidrosis [Not Recovered/Not Resolved]
